FAERS Safety Report 15340329 (Version 1)
Quarter: 2018Q3

REPORT INFORMATION
  Report Type: Spontaneous
  Country: US (occurrence: US)
  Receive Date: 20180831
  Receipt Date: 20180831
  Transmission Date: 20181010
  Serious: No
  Sender: FDA-Public Use
  Company Number: US-009507513-1808USA013763

PATIENT
  Sex: Female
  Weight: 112.93 kg

DRUGS (2)
  1. NEXPLANON [Suspect]
     Active Substance: ETONOGESTREL
     Dosage: ONE ROD
     Route: 059
     Dates: start: 20180820
  2. NEXPLANON [Suspect]
     Active Substance: ETONOGESTREL
     Dosage: ONE UNIT
     Route: 059
     Dates: start: 20170221, end: 20180820

REACTIONS (1)
  - Device breakage [Recovered/Resolved]
